FAERS Safety Report 12304633 (Version 1)
Quarter: 2016Q2

REPORT INFORMATION
  Report Type: Spontaneous
  Country: US (occurrence: None)
  Receive Date: 20160425
  Receipt Date: 20160425
  Transmission Date: 20160815
  Serious: Yes (Disabling)
  Sender: FDA-Public Use
  Company Number: None

PATIENT
  Age: 41 Year
  Sex: Female
  Weight: 86.18 kg

DRUGS (1)
  1. MIRENA [Suspect]
     Active Substance: LEVONORGESTREL

REACTIONS (7)
  - Musculoskeletal disorder [None]
  - Intervertebral disc disorder [None]
  - Breast tenderness [None]
  - Abdominal pain [None]
  - Back pain [None]
  - Nausea [None]
  - Abasia [None]

NARRATIVE: CASE EVENT DATE: 20150413
